FAERS Safety Report 13492026 (Version 8)
Quarter: 2017Q2

REPORT INFORMATION
  Report Type: Spontaneous
  Country: JP (occurrence: JP)
  Receive Date: 20170427
  Receipt Date: 20170530
  Transmission Date: 20170830
  Serious: Yes (Hospitalization)
  Sender: FDA-Public Use
  Company Number: PHJP2017JP013749

PATIENT
  Sex: Female

DRUGS (3)
  1. ACETAMINOPHEN. [Concomitant]
     Active Substance: ACETAMINOPHEN
     Indication: BACK PAIN
     Dosage: UNK
     Route: 048
  2. DICLOFENAC [Suspect]
     Active Substance: DICLOFENAC
     Indication: BACK PAIN
     Dosage: UNK
     Route: 054
  3. TRAMADOL. [Concomitant]
     Active Substance: TRAMADOL
     Indication: BACK PAIN
     Dosage: UNK
     Route: 048

REACTIONS (16)
  - Proctalgia [Unknown]
  - Inflammation [Unknown]
  - Anaemia [Unknown]
  - Rectal ulcer haemorrhage [Unknown]
  - Haematochezia [Recovered/Resolved]
  - Mucous stools [Unknown]
  - Large intestinal ulcer [Unknown]
  - Abdominal tenderness [Unknown]
  - Diarrhoea [Recovered/Resolved]
  - Gastrointestinal hypomotility [Unknown]
  - Gastrointestinal wall thickening [Unknown]
  - Intestinal angioedema [Recovering/Resolving]
  - Faeces soft [Unknown]
  - Nutritional condition abnormal [Unknown]
  - Cytomegalovirus enterocolitis [Recovered/Resolved]
  - Gastrointestinal oedema [Unknown]
